FAERS Safety Report 14067680 (Version 1)
Quarter: 2017Q4

REPORT INFORMATION
  Report Type: Spontaneous
  Country: US (occurrence: US)
  Receive Date: 20171008
  Receipt Date: 20171008
  Transmission Date: 20180321
  Serious: Yes (Other)
  Sender: FDA-Public Use
  Company Number: None

PATIENT
  Sex: Female

DRUGS (2)
  1. JOLIVETTE [Suspect]
     Active Substance: NORETHINDRONE
     Indication: CONTRACEPTION
  2. CAMILA [Suspect]
     Active Substance: NORETHINDRONE

REACTIONS (3)
  - Haemorrhage [None]
  - Suppressed lactation [None]
  - Exposure during breast feeding [None]

NARRATIVE: CASE EVENT DATE: 20160413
